FAERS Safety Report 7430054-X (Version None)
Quarter: 2011Q2

REPORT INFORMATION
  Report Type: 
  Country: None (occurrence: None)
  Receive Date: 20110421
  Receipt Date: 20101220
  Transmission Date: 20111010
  Serious: No
  Sender: FDA-Public Use
  Company Number: US-ASTRAZENECA-2010SE38772

PATIENT
  Age: 76 Year
  Sex: Female
  Weight: 67.1 kg

DRUGS (7)
  1. TOPROL-XL [Suspect]
     Dosage: 50MG DAILY AND 25MG EVERY OTHER DAY
     Route: 048
     Dates: start: 20100801
  2. TOPROL-XL [Suspect]
     Indication: MIGRAINE
     Route: 048
     Dates: start: 20090101
  3. TOPROL-XL [Suspect]
     Route: 048
  4. ZOCOR [Concomitant]
     Indication: HYPERCHOLESTEROLAEMIA
  5. TOPROL-XL [Suspect]
     Indication: HYPERTENSION
     Route: 048
     Dates: start: 20090101
  6. TOPROL-XL [Suspect]
     Route: 048
  7. TOPROL-XL [Suspect]
     Dosage: 50MG DAILY AND 25MG EVERY OTHER DAY
     Route: 048
     Dates: start: 20100801

REACTIONS (6)
  - MIGRAINE [None]
  - INCREASED UPPER AIRWAY SECRETION [None]
  - LARYNGITIS [None]
  - DYSGEUSIA [None]
  - THERAPEUTIC RESPONSE DECREASED [None]
  - COUGH [None]
